FAERS Safety Report 6242532-X (Version None)
Quarter: 2009Q2

REPORT INFORMATION
  Report Type: 
  Country: None (occurrence: None)
  Receive Date: 20090622
  Receipt Date: 20090622
  Transmission Date: 20091009
  Serious: Yes (Life-Threatening)
  Sender: FDA-Public Use
  Company Number: None

PATIENT
  Age: 6 Year
  Sex: Male
  Weight: 20.4119 kg

DRUGS (2)
  1. COPPERTONE SPORT 50 SPF SWEATPROOF SCHERING-PLOUGH HEALTHCARE PRODUCT [Suspect]
     Indication: PROPHYLAXIS
     Dosage: APPLY TO ALL EXPOSED SKIN ONCE A DAY TRANSDERMAL
     Route: 062
     Dates: start: 20090616, end: 20090617
  2. COPPERTONE SPORT 50 SPF SWEATPROOF SCHERING-PLOUGH HEALTHCARE PRODUCT [Suspect]
     Indication: SUNBURN
     Dosage: APPLY TO ALL EXPOSED SKIN ONCE A DAY TRANSDERMAL
     Route: 062
     Dates: start: 20090616, end: 20090617

REACTIONS (4)
  - NO REACTION ON PREVIOUS EXPOSURE TO DRUG [None]
  - PRODUCT QUALITY ISSUE [None]
  - RASH [None]
  - URTICARIA [None]
